FAERS Safety Report 5934967-7 (Version None)
Quarter: 2008Q4

REPORT INFORMATION
  Report Type: 
  Country: None (occurrence: None)
  Receive Date: 20081028
  Receipt Date: 20081020
  Transmission Date: 20090506
  Serious: Yes (Other)
  Sender: FDA-Public Use
  Company Number: CHPA2008US18144

PATIENT
  Age: 34 Year
  Sex: Male
  Weight: 86.2 kg

DRUGS (2)
  1. GAS-X ULTRA STRENGTH (NCH) (SIMETHICONE) SOFT GELATIN CAPSULE [Suspect]
     Indication: FLATULENCE
     Dosage: 540 MG, IN 2 HOURS, ORAL
     Route: 048
     Dates: start: 20081019, end: 20081019
  2. STOOL SOFTENER (DOCUSATE SODIUM) [Suspect]
     Dosage: 1 DF, QD, ORAL
     Route: 048
     Dates: start: 20081019, end: 20081019

REACTIONS (2)
  - NEPHROLITHIASIS [None]
  - OVERDOSE [None]
